FAERS Safety Report 8240027-5 (Version None)
Quarter: 2012Q1

REPORT INFORMATION
  Report Type: 
  Country: None (occurrence: None)
  Receive Date: 20120328
  Receipt Date: 20120316
  Transmission Date: 20120608
  Serious: Yes (Hospitalization)
  Sender: FDA-Public Use
  Company Number: US-NOVOPROD-337151

PATIENT
  Age: 53 Year
  Sex: Female
  Weight: 147 kg

DRUGS (6)
  1. LIRAGLUTIDE FLEXPEN [Suspect]
     Dosage: 1.8 MG, QD
     Route: 058
     Dates: start: 20110819, end: 20110826
  2. LIRAGLUTIDE FLEXPEN [Suspect]
     Indication: OBESITY
     Dosage: 0.6 MG, QD
     Route: 058
     Dates: start: 20110805, end: 20110811
  3. LIRAGLUTIDE FLEXPEN [Suspect]
     Dosage: 1.2 MG, QD
     Route: 058
     Dates: start: 20110812, end: 20110818
  4. LIRAGLUTIDE FLEXPEN [Suspect]
     Dosage: 3.0 MG, QD
     Route: 058
     Dates: start: 20110902, end: 20111006
  5. LIRAGLUTIDE FLEXPEN [Suspect]
     Dosage: 2.4 MG, QD
     Route: 058
     Dates: start: 20110827, end: 20110901
  6. FLAGYL [Concomitant]
     Indication: BILE DUCT STONE
     Dosage: 2000 MG, QD
     Dates: start: 20111014, end: 20111017

REACTIONS (2)
  - BILE DUCT STONE [None]
  - ABDOMINAL PAIN [None]
